FAERS Safety Report 9782599 (Version 1)
Quarter: 2013Q4

REPORT INFORMATION
  Report Type: Spontaneous
  Country: FR (occurrence: None)
  Receive Date: 20131220
  Receipt Date: 20131220
  Transmission Date: 20140711
  Serious: Yes (Hospitalization)
  Sender: FDA-Public Use
  Company Number: 1933415

PATIENT
  Age: 68 Year
  Sex: Female

DRUGS (6)
  1. CARBOPLATIN [Suspect]
     Indication: PANCREATIC CARCINOMA
     Route: 041
     Dates: start: 20111109, end: 20111109
  2. PACLITAXEL EBEWE [Concomitant]
  3. POLARAMINE [Concomitant]
  4. METHYLPREDNISOLONE MERCK [Concomitant]
  5. ZOPHREN  /00955301/ [Concomitant]
  6. AZANTAC [Concomitant]

REACTIONS (5)
  - Hyperhidrosis [None]
  - Chest discomfort [None]
  - Erythema [None]
  - Blood pressure decreased [None]
  - Heart rate increased [None]
